FAERS Safety Report 4880213-5 (Version None)
Quarter: 2006Q1

REPORT INFORMATION
  Report Type: 
  Country: None (occurrence: None)
  Receive Date: 20060111
  Receipt Date: 20051229
  Transmission Date: 20060701
  Serious: Yes (Hospitalization, Other)
  Sender: FDA-Public Use
  Company Number: 2005125255

PATIENT
  Age: 55 Year
  Sex: Female
  Weight: 61.2356 kg

DRUGS (10)
  1. BEXTRA [Suspect]
     Indication: ARTHRITIS
     Dosage: (DAILY INTERVAL; EVERY DAY), ORAL
     Route: 048
     Dates: start: 20040101
  2. BEXTRA [Suspect]
     Indication: PAIN
     Dosage: (DAILY INTERVAL; EVERY DAY), ORAL
     Route: 048
     Dates: start: 20040101
  3. BEXTRA [Suspect]
     Indication: SCLERODERMA
     Dosage: (DAILY INTERVAL; EVERY DAY), ORAL
     Route: 048
     Dates: start: 20040101
  4. CELEBREX [Suspect]
     Indication: SCLERODERMA
     Dosage: 200 MG (200 MG, 1 IN 1 D), ORAL
     Route: 048
     Dates: start: 20050801, end: 20050101
  5. PREDNISONE [Suspect]
     Indication: JOINT SWELLING
     Dates: start: 20050101
  6. ALL OTHER THERAPEUTIC PRODUCTS (ALL OTHER THERAPEUTIC PRODUCTS) [Suspect]
     Indication: PAIN
     Dates: start: 20050101, end: 20050101
  7. NEXIUM [Concomitant]
  8. ANTIHYPERTENSIVES (ANTIHYPERTENSIVES) [Concomitant]
  9. IMITREX [Concomitant]
  10. NAPROXEN [Concomitant]

REACTIONS (10)
  - CONDITION AGGRAVATED [None]
  - DRUG INEFFECTIVE [None]
  - HYPERTENSION [None]
  - JOINT SWELLING [None]
  - OEDEMA PERIPHERAL [None]
  - ORAL INTAKE REDUCED [None]
  - PAIN [None]
  - RENAL DISORDER [None]
  - SCLERODERMA [None]
  - STOMACH DISCOMFORT [None]
